FAERS Safety Report 9449249 (Version 2)
Quarter: 2013Q3

REPORT INFORMATION
  Report Type: Spontaneous
  Country: US (occurrence: US)
  Receive Date: 20130808
  Receipt Date: 20130822
  Transmission Date: 20140515
  Serious: Yes (Other)
  Sender: FDA-Public Use
  Company Number: US-GLAXOSMITHKLINE-A1036664A

PATIENT
  Sex: Male

DRUGS (1)
  1. FONDAPARINUX [Suspect]
     Indication: THROMBOSIS
     Route: 065
     Dates: start: 201301

REACTIONS (4)
  - Urinary retention [Not Recovered/Not Resolved]
  - Ulcer haemorrhage [Not Recovered/Not Resolved]
  - Skin ulcer [Not Recovered/Not Resolved]
  - Pruritus generalised [Not Recovered/Not Resolved]
